FAERS Safety Report 6982714-2 (Version None)
Quarter: 2010Q3

REPORT INFORMATION
  Report Type: 
  Country: None (occurrence: None)
  Receive Date: 20100914
  Receipt Date: 20100319
  Transmission Date: 20110219
  Serious: No
  Sender: FDA-Public Use
  Company Number: US-PFIZER INC-2010036524

PATIENT
  Sex: Female
  Weight: 77.098 kg

DRUGS (3)
  1. LYRICA [Suspect]
     Indication: FACIAL NEURALGIA
     Dosage: 200 MG, 2X/DAY
     Route: 048
     Dates: start: 20090101
  2. METOPROLOL [Concomitant]
     Indication: HEART RATE IRREGULAR
     Dosage: UNK
  3. CELEBREX [Concomitant]
     Indication: ARTHRITIS
     Dosage: UNK

REACTIONS (4)
  - FACIAL PAIN [None]
  - FATIGUE [None]
  - ORAL PAIN [None]
  - PAIN [None]
